FAERS Safety Report 16558394 (Version 3)
Quarter: 2020Q3

REPORT INFORMATION
  Report Type: Report from Study
  Country: BR (occurrence: BR)
  Receive Date: 20190711
  Receipt Date: 20200727
  Transmission Date: 20201102
  Serious: Yes (Hospitalization)
  Sender: FDA-Public Use
  Company Number: BR-TAKEDA-2019TUS042075

PATIENT
  Age: 25 Year
  Sex: Male

DRUGS (1)
  1. VEDOLIZUMAB [Suspect]
     Active Substance: VEDOLIZUMAB
     Indication: CROHN^S DISEASE
     Dosage: 300 MILLIGRAM
     Route: 042
     Dates: start: 20190517, end: 20200721

REACTIONS (4)
  - Pyrexia [Unknown]
  - Crohn^s disease [Not Recovered/Not Resolved]
  - Arthralgia [Unknown]
  - Diarrhoea [Unknown]

NARRATIVE: CASE EVENT DATE: 201910
